FAERS Safety Report 12121412 (Version 1)
Quarter: 2016Q1

REPORT INFORMATION
  Report Type: Report from Study
  Country: US (occurrence: US)
  Receive Date: 20160226
  Receipt Date: 20160226
  Transmission Date: 20160526
  Serious: Yes (Other)
  Sender: FDA-Public Use
  Company Number: US-ABBVIE-15P-163-1421843-00

PATIENT
  Sex: Male

DRUGS (1)
  1. ANDROGEL [Suspect]
     Active Substance: TESTOSTERONE
     Indication: BLOOD TESTOSTERONE DECREASED
     Dosage: APPLY 3 PACKETS TO SKIN ONCE DAILY AS DIRECTED
     Route: 065

REACTIONS (5)
  - Weight increased [Unknown]
  - Wound infection staphylococcal [Unknown]
  - Hip arthroplasty [Unknown]
  - Oedema peripheral [Unknown]
  - Blood pressure increased [Unknown]
